FAERS Safety Report 25190624 (Version 2)
Quarter: 2025Q2

REPORT INFORMATION
  Report Type: Spontaneous
  Country: US (occurrence: US)
  Receive Date: 20250411
  Receipt Date: 20250415
  Transmission Date: 20250717
  Serious: Yes (Hospitalization, Other)
  Sender: SANDOZ
  Company Number: US-SANDOZ-SDZ2025US022043

PATIENT
  Age: 73 Year
  Sex: Female
  Weight: 56 kg

DRUGS (20)
  1. CARBOPLATIN [Suspect]
     Active Substance: CARBOPLATIN
     Indication: Non-small cell lung cancer stage IV
     Dosage: 453.5 AUC-5, Q3WEEKS
     Route: 042
     Dates: start: 20250212, end: 20250212
  2. CARBOPLATIN [Suspect]
     Active Substance: CARBOPLATIN
     Dosage: 454 AUC-5, Q3WEEKS;
     Route: 042
     Dates: start: 20250326, end: 20250326
  3. ORDASTOBART [Suspect]
     Active Substance: ORDASTOBART
     Indication: Non-small cell lung cancer stage IV
     Dosage: 5.74 MG, Q3W, INBRX-106 (INBRX-106 IS A HEXAVALENT, RECOMBINANT HUMANIZED IGG1, OX40 AGONIST ANTIBOD
     Route: 042
     Dates: start: 20250212, end: 20250212
  4. ORDASTOBART [Suspect]
     Active Substance: ORDASTOBART
     Dosage: 57.4 MG, Q3W, INBRX-106 (INBRX-106 IS A HEXAVALENT, RECOMBINANT HUMANIZED IGG1, OX40 AGONIST ANTIBOD
     Route: 042
     Dates: start: 20250326, end: 20250326
  5. PEMETREXED [Suspect]
     Active Substance: PEMETREXED
     Indication: Non-small cell lung cancer stage IV
     Dosage: 800 MG/M2, Q3WEEKS;
     Route: 042
     Dates: start: 20250212, end: 20250212
  6. PEMETREXED [Suspect]
     Active Substance: PEMETREXED
     Dosage: 800 MG/M2, Q3WEEKS;
     Route: 042
     Dates: start: 20250326, end: 20250326
  7. PEMBROLIZUMAB [Suspect]
     Active Substance: PEMBROLIZUMAB
     Indication: Non-small cell lung cancer stage IV
     Dosage: 200 MG, Q3WEEKS
     Route: 042
     Dates: start: 20250212, end: 20250212
  8. PEMBROLIZUMAB [Suspect]
     Active Substance: PEMBROLIZUMAB
     Dosage: 200 MG, Q3WEEKS
     Route: 042
     Dates: start: 20250326, end: 20250326
  9. ASPIRIN [Concomitant]
     Active Substance: ASPIRIN
     Indication: Product used for unknown indication
     Route: 065
     Dates: start: 20240917
  10. ATORVASTATIN [Concomitant]
     Active Substance: ATORVASTATIN
     Indication: Product used for unknown indication
     Route: 065
     Dates: start: 20241003
  11. BISOPROLOL [Concomitant]
     Active Substance: BISOPROLOL
     Indication: Product used for unknown indication
     Route: 065
     Dates: start: 20241003
  12. CALCIUM CARBONATE [Concomitant]
     Active Substance: CALCIUM CARBONATE
     Indication: Product used for unknown indication
     Route: 065
     Dates: start: 20240913
  13. ERGOCALCIFEROL [Concomitant]
     Active Substance: ERGOCALCIFEROL
     Indication: Product used for unknown indication
     Route: 065
     Dates: start: 20211015
  14. FOLIC ACID [Concomitant]
     Active Substance: FOLIC ACID
     Indication: Product used for unknown indication
     Route: 065
     Dates: start: 20240930
  15. FUROSEMIDE [Concomitant]
     Active Substance: FUROSEMIDE
     Indication: Product used for unknown indication
     Route: 065
     Dates: start: 20240916
  16. MAGNESIUM CITRATE [Concomitant]
     Active Substance: MAGNESIUM CITRATE
     Indication: Product used for unknown indication
     Route: 065
     Dates: start: 20210919
  17. VITAMINS [Concomitant]
     Active Substance: VITAMINS
     Indication: Product used for unknown indication
     Route: 065
     Dates: start: 20240913
  18. ONDANSETRON [Concomitant]
     Active Substance: ONDANSETRON
     Indication: Product used for unknown indication
     Route: 065
     Dates: start: 20241231
  19. PROCHLORPERAZINE [Concomitant]
     Active Substance: PROCHLORPERAZINE
     Indication: Product used for unknown indication
     Route: 065
     Dates: start: 20241231
  20. SULFAMETHOXAZOLE\TRIMETHOPRIM [Concomitant]
     Active Substance: SULFAMETHOXAZOLE\TRIMETHOPRIM
     Indication: Product used for unknown indication
     Route: 065
     Dates: start: 20250226

REACTIONS (1)
  - Ischaemic stroke [Unknown]

NARRATIVE: CASE EVENT DATE: 20250402
